FAERS Safety Report 5640107-4 (Version None)
Quarter: 2008Q1

REPORT INFORMATION
  Report Type: 
  Country: None (occurrence: None)
  Receive Date: 20080226
  Receipt Date: 20080226
  Transmission Date: 20080703
  Serious: Yes (Other)
  Sender: FDA-Public Use
  Company Number: None

PATIENT
  Sex: Female
  Weight: 79.3795 kg

DRUGS (2)
  1. TRAMADOL HCL [Suspect]
     Indication: BACK PAIN
     Dosage: 2 TABLETS EVERY SIX HOURS AS PO
     Route: 048
     Dates: start: 20060101, end: 20070531
  2. CYCLOBENZAPRINE HCL [Suspect]
     Indication: MUSCLE SPASMS
     Dosage: 1 3 TIMES DAILY PO
     Route: 048
     Dates: start: 20060101, end: 20070531

REACTIONS (2)
  - ABNORMAL BEHAVIOUR [None]
  - HALLUCINATION [None]
